FAERS Safety Report 4305402-X (Version None)
Quarter: 2004Q1

REPORT INFORMATION
  Report Type: 
  Country: None (occurrence: None)
  Receive Date: 20040226
  Receipt Date: 20030701
  Transmission Date: 20041129
  Serious: No
  Sender: FDA-Public Use
  Company Number: US-BRISTOL-MYERS SQUIBB COMPANY-12411245

PATIENT
  Sex: Male

DRUGS (6)
  1. TAXOL [Suspect]
     Indication: CARCINOMA
     Route: 042
  2. CARBOPLATIN [Suspect]
     Indication: CARCINOMA
     Dosage: AUC=5
     Route: 042
  3. ZOFRAN [Concomitant]
     Indication: PREMEDICATION
  4. DECADRON [Concomitant]
     Indication: PREMEDICATION
  5. BENADRYL [Concomitant]
     Indication: PREMEDICATION
  6. ZANTAC [Concomitant]
     Indication: PREMEDICATION

REACTIONS (1)
  - ARTHRALGIA [None]
